FAERS Safety Report 7339324-7 (Version None)
Quarter: 2011Q1

REPORT INFORMATION
  Report Type: 
  Country: None (occurrence: None)
  Receive Date: 20110308
  Receipt Date: 20110304
  Transmission Date: 20110831
  Serious: Yes (Other)
  Sender: FDA-Public Use
  Company Number: US-PFIZER INC-2011048405

PATIENT
  Sex: Female
  Weight: 149.66 kg

DRUGS (16)
  1. LYRICA [Suspect]
     Indication: CEREBROVASCULAR SPASM
     Dosage: 100 MG, 3X/DAY
     Route: 048
     Dates: start: 20080101
  2. SYNTHROID [Concomitant]
     Dosage: 125 UG, UNK
     Route: 048
  3. ADVAIR DISKUS 100/50 [Concomitant]
     Dosage: UNK
  4. ALBUTEROL SULFATE [Concomitant]
     Dosage: UNK
  5. PRILOSEC [Concomitant]
     Dosage: 20 MG, 2X/DAY
     Route: 048
  6. ATENOLOL [Concomitant]
     Dosage: 50 MG, 1X/DAY
     Route: 048
  7. ZYRTEC [Concomitant]
     Dosage: 10 MG, 1X/DAY
     Route: 048
  8. XALATAN [Concomitant]
     Dosage: UNK
  9. HUMALOG [Concomitant]
     Dosage: UNK
  10. XALATAN [Concomitant]
     Dosage: UNK
     Route: 047
  11. LANTUS [Concomitant]
     Dosage: 65 MG, 1X/DAY
  12. LYRICA [Suspect]
     Indication: FIBROMYALGIA
  13. ESTRADIOL [Concomitant]
     Dosage: 1 MG, 1X/DAY
  14. ACETYLSALICYLIC ACID [Concomitant]
     Indication: CEREBROVASCULAR ACCIDENT
     Dosage: 162 MG, 1X/DAY
     Route: 048
  15. DICLOFENAC [Concomitant]
     Dosage: 75 MG, UNK
  16. LISINOPRIL [Concomitant]
     Dosage: 10 MG, 1X/DAY

REACTIONS (3)
  - PNEUMONIA [None]
  - PANCREATITIS [None]
  - DIABETES MELLITUS [None]
